FAERS Safety Report 12606058 (Version 1)
Quarter: 2016Q3

REPORT INFORMATION
  Report Type: Spontaneous
  Country: US (occurrence: US)
  Receive Date: 20160729
  Receipt Date: 20160729
  Transmission Date: 20161109
  Serious: No
  Sender: FDA-Public Use
  Company Number: US-PFIZER INC-2016356713

PATIENT
  Sex: Female

DRUGS (1)
  1. PRISTIQ EXTENDED-RELEASE [Suspect]
     Active Substance: DESVENLAFAXINE SUCCINATE
     Indication: MIGRAINE
     Dosage: 25 MG, 1X/DAY(25MG TABLET BY MOUTH ONCE DAILY)
     Route: 048
     Dates: start: 201606

REACTIONS (1)
  - Alopecia [Not Recovered/Not Resolved]
